FAERS Safety Report 4860565-2 (Version None)
Quarter: 2005Q4

REPORT INFORMATION
  Report Type: 
  Country: None (occurrence: None)
  Receive Date: 20051219
  Receipt Date: 20050719
  Transmission Date: 20060501
  Serious: Yes (Other)
  Sender: FDA-Public Use
  Company Number: US-MERCK-0507USA02740

PATIENT
  Age: 74 Year
  Sex: Female
  Weight: 52 kg

DRUGS (9)
  1. PRINZIDE [Suspect]
     Indication: HYPERTENSION
     Route: 048
     Dates: start: 19950101, end: 20050208
  2. FOSAMAX [Concomitant]
     Indication: OSTEOPOROSIS
     Route: 048
  3. ZOCOR [Concomitant]
     Indication: HYPERLIPIDAEMIA
     Route: 048
  4. POTASSIUM CHLORIDE [Concomitant]
     Indication: ELECTROLYTE SUBSTITUTION THERAPY
     Route: 048
  5. ASPIRIN [Concomitant]
     Route: 048
  6. CALCIUM (UNSPECIFIED) AND VITAMIN D (UNSPECIFIED) [Concomitant]
     Indication: OSTEOPOROSIS
     Route: 048
  7. LEVAQUIN [Concomitant]
     Route: 065
     Dates: start: 20050205
  8. PROTONIX [Concomitant]
     Route: 065
     Dates: start: 20050205
  9. ETODOLAC [Concomitant]
     Route: 065
     Dates: start: 20050205

REACTIONS (5)
  - ANGIONEUROTIC OEDEMA [None]
  - COLON CANCER [None]
  - DYSPHAGIA [None]
  - OEDEMA MOUTH [None]
  - SWOLLEN TONGUE [None]
